FAERS Safety Report 5503405-0 (Version None)
Quarter: 2007Q4

REPORT INFORMATION
  Report Type: 
  Country: None (occurrence: None)
  Receive Date: 20071031
  Receipt Date: 20071019
  Transmission Date: 20080405
  Serious: Yes (Other)
  Sender: FDA-Public Use
  Company Number: US-PFIZER INC-2007088755

PATIENT
  Sex: Female
  Weight: 90.7 kg

DRUGS (8)
  1. LYRICA [Suspect]
     Indication: FIBROMYALGIA
  2. REGLAN [Suspect]
  3. LEXAPRO [Concomitant]
  4. FLEXERIL [Concomitant]
  5. MOBIC [Concomitant]
  6. PLAQUENIL [Concomitant]
  7. AMBIEN [Concomitant]
  8. DARVOCET [Concomitant]

REACTIONS (4)
  - DYSKINESIA [None]
  - EYELID PTOSIS [None]
  - MASTICATION DISORDER [None]
  - MUSCLE TWITCHING [None]
